FAERS Safety Report 8568917-4 (Version None)
Quarter: 2012Q3

REPORT INFORMATION
  Report Type: 
  Country: None (occurrence: None)
  Receive Date: 20120803
  Receipt Date: 20120213
  Transmission Date: 20120928
  Serious: No
  Sender: FDA-Public Use
  Company Number: US-ABBOTT-12P-163-0904164-00

PATIENT
  Sex: Male
  Weight: 131.66 kg

DRUGS (4)
  1. PRAVASTATIN [Concomitant]
     Indication: BLOOD CHOLESTEROL
  2. ASPIRIN [Concomitant]
     Indication: PRODUCT USED FOR UNKNOWN INDICATION
  3. NIASPAN [Suspect]
     Indication: BLOOD CHOLESTEROL
  4. LAMAPRIL [Concomitant]
     Indication: BLOOD CHOLESTEROL

REACTIONS (2)
  - FLUSHING [None]
  - PRURITUS [None]
